FAERS Safety Report 21677035 (Version 4)
Quarter: 2023Q1

REPORT INFORMATION
  Report Type: Report from Study
  Country: US (occurrence: US)
  Receive Date: 20221203
  Receipt Date: 20230118
  Transmission Date: 20230417
  Serious: No
  Sender: FDA-Public Use
  Company Number: US-002147023-NVSC2022US278008

PATIENT
  Sex: Male

DRUGS (2)
  1. TASIGNA [Suspect]
     Active Substance: NILOTINIB
     Indication: Product used for unknown indication
     Dosage: UNK
     Route: 048
     Dates: start: 20221122
  2. PREDNISONE [Concomitant]
     Active Substance: PREDNISONE
     Indication: Product used for unknown indication
     Dosage: UNK
     Route: 065

REACTIONS (8)
  - Tumour marker increased [Unknown]
  - Blood glucose increased [Unknown]
  - Rash [Unknown]
  - Haemoglobin decreased [Unknown]
  - Hypersensitivity [Unknown]
  - Rash erythematous [Unknown]
  - Pruritus [Unknown]
  - Erythema [Unknown]
